FAERS Safety Report 7682271-1 (Version None)
Quarter: 2011Q3

REPORT INFORMATION
  Report Type: 
  Country: None (occurrence: None)
  Receive Date: 20110805
  Receipt Date: 20110722
  Transmission Date: 20111222
  Serious: Yes (Hospitalization)
  Sender: FDA-Public Use
  Company Number: DSA_47265_2011

PATIENT
  Age: 73 Year
  Sex: Male

DRUGS (9)
  1. ENALAPRIL MALEATE AND HYDROCHLOROTHIAZIDE [Suspect]
     Indication: HYPERTENSION
     Dosage: (20 MG/12.5 MG TABLET, FREQUENCY UNKNOWN ORAL)
     Route: 048
     Dates: end: 20110414
  2. IMODIUM [Concomitant]
  3. ACETAMINOPHEN [Concomitant]
  4. SERC /00141802/ [Concomitant]
  5. EUCREAS (EUCREAS  - METFORMIN HYDROCHLORIDE + VILDAGLIPTIN) (NOT SPECI [Suspect]
     Indication: PRODUCT USED FOR UNKNOWN INDICATION
     Dosage: (DF ORAL)
     Route: 048
     Dates: start: 20110301, end: 20110414
  6. INEXIUM /01479302/ (INEXIUM - ESOMEPRAZOLE MAGNESIUM) (NOT SPECIFIED) [Suspect]
     Indication: PRODUCT USED FOR UNKNOWN INDICATION
     Dosage: (40 MG QD ORAL)
     Route: 048
     Dates: end: 20110421
  7. EXFORGE (EXFORGE - AMLODIPINE BESYLATE + VALSARTAN) (NOT SPECIFIED) [Suspect]
     Indication: PRODUCT USED FOR UNKNOWN INDICATION
     Dosage: (DF ORAL)
     Route: 048
     Dates: end: 20110414
  8. AMARYL [Concomitant]
  9. TOPALGIC /00599202/ [Concomitant]

REACTIONS (2)
  - ANAEMIA [None]
  - RENAL FAILURE ACUTE [None]
